FAERS Safety Report 21263073 (Version 1)
Quarter: 2022Q3

REPORT INFORMATION
  Report Type: Spontaneous
  Country: US (occurrence: None)
  Receive Date: 20220826
  Receipt Date: 20220826
  Transmission Date: 20221026
  Serious: Yes (Other)
  Sender: FDA-Public Use
  Company Number: None

PATIENT
  Age: 59 Year
  Sex: Male
  Weight: 80.55 kg

DRUGS (1)
  1. PAXLOVID [Suspect]
     Active Substance: NIRMATRELVIR\RITONAVIR
     Indication: COVID-19
     Dates: start: 20220815, end: 20220820

REACTIONS (6)
  - COVID-19 [None]
  - Pyrexia [None]
  - Oropharyngeal pain [None]
  - SARS-CoV-2 test positive [None]
  - Rebound effect [None]
  - Impaired work ability [None]

NARRATIVE: CASE EVENT DATE: 20220822
